FAERS Safety Report 7038580-2 (Version None)
Quarter: 2010Q4

REPORT INFORMATION
  Report Type: 
  Country: None (occurrence: None)
  Receive Date: 20101011
  Receipt Date: 20100630
  Transmission Date: 20110411
  Serious: No
  Sender: FDA-Public Use
  Company Number: US-PFIZER INC-2006033207

PATIENT
  Sex: Female
  Weight: 64.399 kg

DRUGS (7)
  1. NEURONTIN [Suspect]
     Indication: POST HERPETIC NEURALGIA
     Dosage: UNK
     Route: 048
     Dates: start: 20050101, end: 20070101
  2. LYRICA [Suspect]
     Indication: POST HERPETIC NEURALGIA
     Dosage: 75 MG, 3X/DAY
     Route: 048
     Dates: start: 20070101
  3. LYRICA [Suspect]
     Dosage: 150 MG, 1X/DAY
     Route: 048
  4. DARVOCET [Concomitant]
     Dosage: UNK
     Route: 065
  5. ATENOLOL [Concomitant]
     Dosage: UNK
     Route: 065
  6. XANAX [Concomitant]
     Dosage: UNK
     Route: 065
  7. LIPITOR [Concomitant]
     Dosage: UNK

REACTIONS (4)
  - DRUG INEFFECTIVE [None]
  - POLLAKIURIA [None]
  - URINARY TRACT INFECTION [None]
  - VULVOVAGINAL DISCOMFORT [None]
